FAERS Safety Report 15491630 (Version 1)
Quarter: 2018Q4

REPORT INFORMATION
  Report Type: Spontaneous
  Country: US (occurrence: US)
  Receive Date: 20181012
  Receipt Date: 20181012
  Transmission Date: 20190205
  Serious: No
  Sender: FDA-Public Use
  Company Number: US-ASTRAZENECA-2018SF03095

PATIENT
  Age: 65 Year
  Sex: Female
  Weight: 53.1 kg

DRUGS (4)
  1. HUMULIN NOS [Concomitant]
     Active Substance: INSULIN HUMAN
     Dosage: 6 UNITS DAILY
  2. BYDUREON BCISE [Suspect]
     Active Substance: EXENATIDE
     Indication: TYPE 2 DIABETES MELLITUS
     Route: 058
  3. HUMALOG [Concomitant]
     Active Substance: INSULIN LISPRO
     Dosage: 6 UNITS DAILY
  4. REPAGLINIDE. [Concomitant]
     Active Substance: REPAGLINIDE
     Route: 048

REACTIONS (2)
  - Blood glucose increased [Unknown]
  - Injection site nodule [Not Recovered/Not Resolved]
